FAERS Safety Report 6558856-2 (Version None)
Quarter: 2010Q1

REPORT INFORMATION
  Report Type: 
  Country: None (occurrence: None)
  Receive Date: 20100129
  Receipt Date: 20100125
  Transmission Date: 20100710
  Serious: Yes (Other)
  Sender: FDA-Public Use
  Company Number: GB-WATSON-2010-01000

PATIENT

DRUGS (1)
  1. CODRIX (WATSON LABORATORIES) [Suspect]
     Indication: DRUG USE FOR UNKNOWN INDICATION
     Dosage: TOTAL DAILY CODEINE DOSE: 8-20  TABS

REACTIONS (1)
  - DEAFNESS NEUROSENSORY [None]
